FAERS Safety Report 19920312 (Version 4)
Quarter: 2021Q4

REPORT INFORMATION
  Report Type: Report from Study
  Country: CA (occurrence: CA)
  Receive Date: 20211005
  Receipt Date: 20211214
  Transmission Date: 20220303
  Serious: Yes (Other)
  Sender: FDA-Public Use
  Company Number: CA-KYOWAKIRIN-2021BKK016409

PATIENT

DRUGS (10)
  1. CRYSVITA [Suspect]
     Active Substance: BUROSUMAB-TWZA
     Indication: Hereditary hypophosphataemic rickets
     Dosage: 60 MG, Q4 WEEKS
     Route: 058
     Dates: start: 20200115, end: 20200504
  2. CRYSVITA [Suspect]
     Active Substance: BUROSUMAB-TWZA
     Dosage: 80 MG (COMBINED STRENGTH 20 MG/ML AND 30 MG/ML), Q4 WEEKS
     Route: 058
     Dates: start: 20210601, end: 202109
  3. CRYSVITA [Suspect]
     Active Substance: BUROSUMAB-TWZA
     Dosage: 80 MG (COMBINED STRENGTH 20 MG/ML AND 30 MG/ML), Q4 WEEKS
     Route: 058
     Dates: start: 20210824, end: 20210824
  4. CRYSVITA [Suspect]
     Active Substance: BUROSUMAB-TWZA
     Dosage: 80 MG (COMBINED STRENGTH 20 MG/ML AND 30 MG/ML), Q4 WEEKS
     Route: 058
     Dates: start: 20210824, end: 20210824
  5. CRYSVITA [Suspect]
     Active Substance: BUROSUMAB-TWZA
     Indication: Hereditary hypophosphataemic rickets
     Dosage: 80 MG (COMBINED STRENGTH 20 MG/ML AND 30 MG/ML), Q4 WEEKS
     Route: 058
     Dates: start: 20200601, end: 202109
  6. CRYSVITA [Suspect]
     Active Substance: BUROSUMAB-TWZA
     Dosage: 80 MG (COMBINED STRENGTH 20 MG/ML AND 30 MG/ML), Q4 WEEKS
     Route: 058
     Dates: start: 20210824, end: 20210824
  7. CRYSVITA [Suspect]
     Active Substance: BUROSUMAB-TWZA
     Dosage: 80 MG (COMBINED STRENGTH 20 MG/ML AND 30 MG/ML), Q4 WEEKS
     Route: 058
     Dates: start: 20210824, end: 20210824
  8. CRYSVITA [Suspect]
     Active Substance: BUROSUMAB-TWZA
     Indication: Hereditary hypophosphataemic rickets
     Dosage: 80 MG / Q 4 WEEKS
     Route: 058
     Dates: start: 20211103, end: 20211103
  9. CRYSVITA [Suspect]
     Active Substance: BUROSUMAB-TWZA
     Dosage: 80 MG / Q 4 WEEKS
     Route: 058
     Dates: start: 20211103, end: 20211103
  10. CRYSVITA [Suspect]
     Active Substance: BUROSUMAB-TWZA
     Dosage: 80 MG, Q 4 WEEKS
     Route: 058
     Dates: start: 20211130

REACTIONS (1)
  - Basedow^s disease [Unknown]

NARRATIVE: CASE EVENT DATE: 20210501
